FAERS Safety Report 4526767-X (Version None)
Quarter: 2004Q4

REPORT INFORMATION
  Report Type: 
  Country: None (occurrence: None)
  Receive Date: 20041213
  Receipt Date: 20041129
  Transmission Date: 20050328
  Serious: No
  Sender: FDA-Public Use
  Company Number: 2004UW24426

PATIENT
  Age: 48 Year
  Sex: Male
  Weight: 96.6162 kg

DRUGS (9)
  1. CRESTOR [Suspect]
     Dosage: 20 MG DAILY PO
     Route: 048
     Dates: start: 20040712, end: 20041122
  2. TOPROL-XL [Concomitant]
  3. ACIPHEX [Concomitant]
  4. ASPIRIN [Concomitant]
  5. DYAZIDE [Concomitant]
  6. LOTREL [Concomitant]
  7. TYLENOL (CAPLET) [Concomitant]
  8. ALLOPURINOL [Concomitant]
  9. FOLIC ACID [Concomitant]

REACTIONS (4)
  - DIABETIC NEUROPATHY [None]
  - OEDEMA PERIPHERAL [None]
  - RENAL CYST [None]
  - RENAL FAILURE [None]
